FAERS Safety Report 5120852-X (Version None)
Quarter: 2006Q4

REPORT INFORMATION
  Report Type: 
  Country: None (occurrence: None)
  Receive Date: 20061005
  Receipt Date: 20060907
  Transmission Date: 20070319
  Serious: Yes (Death)
  Sender: FDA-Public Use
  Company Number: DE-BAYER-200611178BVD

PATIENT
  Age: 57 Year
  Sex: Male
  Weight: 81 kg

DRUGS (13)
  1. AVELOX [Suspect]
     Indication: BRONCHITIS ACUTE
     Route: 048
     Dates: start: 20060612, end: 20060616
  2. DIGIMERCK [Concomitant]
  3. HCT [Concomitant]
  4. TORSEMIDE [Concomitant]
  5. MARCUMAR [Concomitant]
  6. METFORMIN HCL [Concomitant]
  7. AMARYL [Concomitant]
  8. ALLOPURINOL [Concomitant]
  9. BELOC ZOK [Concomitant]
     Route: 065
  10. RAMIPRIL [Concomitant]
     Route: 065
  11. GLYBURIDE [Concomitant]
     Route: 065
  12. SIMVASTATIN [Concomitant]
     Route: 065
  13. NAC SANDOZ [Concomitant]
     Route: 065
     Dates: start: 20060612

REACTIONS (3)
  - CARDIAC ARREST [None]
  - CARDIAC FAILURE [None]
  - SUDDEN DEATH [None]
